FAERS Safety Report 16531980 (Version 1)
Quarter: 2019Q3

REPORT INFORMATION
  Report Type: Spontaneous
  Country: US (occurrence: US)
  Receive Date: 20190523
  Receipt Date: 20190523
  Transmission Date: 20191004
  Serious: Yes (Hospitalization)
  Sender: FDA-Public Use
  Company Number: None

PATIENT
  Age: 72 Year
  Sex: Female
  Weight: 89 kg

DRUGS (1)
  1. NUVIGIL [Suspect]
     Active Substance: ARMODAFINIL
     Dosage: ?          OTHER DOSE:10 UNIT;?
     Dates: end: 20170630

REACTIONS (4)
  - Glioblastoma [None]
  - Malignant neoplasm progression [None]
  - Vasogenic cerebral oedema [None]
  - Muscular weakness [None]

NARRATIVE: CASE EVENT DATE: 20170701
